FAERS Safety Report 25808999 (Version 1)
Quarter: 2025Q3

REPORT INFORMATION
  Report Type: Report from Study
  Country: PR (occurrence: PR)
  Receive Date: 20250916
  Receipt Date: 20250916
  Transmission Date: 20251020
  Serious: Yes (Other)
  Sender: MALLINCKRODT
  Company Number: PR-MALLINCKRODT-MNK202500874

PATIENT
  Sex: Female
  Weight: 206 kg

DRUGS (1)
  1. CORTICOTROPIN [Suspect]
     Active Substance: CORTICOTROPIN
     Indication: Keratitis

REACTIONS (5)
  - Keratitis [Recovering/Resolving]
  - Condition aggravated [Recovering/Resolving]
  - Eye operation [Unknown]
  - Lipoma [Unknown]
  - Weight increased [Unknown]
